FAERS Safety Report 13492544 (Version 1)
Quarter: 2017Q2

REPORT INFORMATION
  Report Type: Spontaneous
  Country: US (occurrence: US)
  Receive Date: 20170427
  Receipt Date: 20170427
  Transmission Date: 20170830
  Serious: No
  Sender: FDA-Public Use
  Company Number: US-UPSHER-SMITH LABORATORIES, INC.-16001909

PATIENT
  Age: 53 Year
  Sex: Female

DRUGS (3)
  1. VANCO [Concomitant]
     Active Substance: VANCOMYCIN
     Indication: CLOSTRIDIUM DIFFICILE INFECTION
     Dosage: UNK
     Dates: end: 2016
  2. DIFICID [Concomitant]
     Active Substance: FIDAXOMICIN
     Indication: CLOSTRIDIUM DIFFICILE INFECTION
     Dosage: UNK
  3. PREVALITE [Suspect]
     Active Substance: CHOLESTYRAMINE
     Indication: MULTIPLE DRUG THERAPY
     Dosage: 4 G, BID
     Route: 048
     Dates: start: 201609, end: 20161002

REACTIONS (1)
  - Throat irritation [Recovered/Resolved]

NARRATIVE: CASE EVENT DATE: 201609
